FAERS Safety Report 8007128-8 (Version None)
Quarter: 2011Q4

REPORT INFORMATION
  Report Type: 
  Country: None (occurrence: None)
  Receive Date: 20111227
  Receipt Date: 20111215
  Transmission Date: 20120403
  Serious: Yes (Death)
  Sender: FDA-Public Use
  Company Number: GB-JNJFOC-20111207972

PATIENT
  Age: 20 Year
  Sex: Female

DRUGS (2)
  1. ACETAMINOPHEN [Suspect]
     Route: 065
  2. ACETAMINOPHEN [Suspect]
     Indication: PROCEDURAL PAIN
     Route: 065
     Dates: start: 20110101

REACTIONS (2)
  - HEPATIC FAILURE [None]
  - OVERDOSE [None]
